FAERS Safety Report 4619747-7 (Version None)
Quarter: 2005Q1

REPORT INFORMATION
  Report Type: 
  Country: None (occurrence: None)
  Receive Date: 20050325
  Receipt Date: 20050316
  Transmission Date: 20050727
  Serious: Yes (Hospitalization)
  Sender: FDA-Public Use
  Company Number: GB-MERCK-0503GBR00140

PATIENT
  Age: 58 Year
  Sex: Male

DRUGS (7)
  1. ZOCOR [Suspect]
     Route: 065
  2. PRAVASTATIN SODIUM [Suspect]
     Route: 065
  3. BISOPROLOL [Concomitant]
     Route: 065
  4. AMLODIPINE BESYLATE [Concomitant]
     Route: 065
  5. SPIRONOLACTONE [Concomitant]
     Route: 065
  6. RAMIPRIL [Concomitant]
     Route: 065
  7. WARFARIN [Concomitant]
     Route: 065

REACTIONS (18)
  - ASTHENIA [None]
  - BACK PAIN [None]
  - BIOPSY SITE UNSPECIFIED ABNORMAL [None]
  - BLOOD CREATININE INCREASED [None]
  - BLOOD SODIUM DECREASED [None]
  - BLOOD UREA INCREASED [None]
  - C-REACTIVE PROTEIN INCREASED [None]
  - CSF PROTEIN INCREASED [None]
  - DYSPNOEA [None]
  - EOSINOPHIL COUNT INCREASED [None]
  - FATIGUE [None]
  - GUILLAIN-BARRE SYNDROME [None]
  - HAEMOGLOBIN DECREASED [None]
  - HYPOAESTHESIA [None]
  - INTERNATIONAL NORMALISED RATIO INCREASED [None]
  - NERVE CONDUCTION STUDIES ABNORMAL [None]
  - PERIPHERAL SENSORY NEUROPATHY [None]
  - RECTAL HAEMORRHAGE [None]
